FAERS Safety Report 9758632 (Version 1)
Quarter: 2013Q4

REPORT INFORMATION
  Report Type: Spontaneous
  Country: US (occurrence: None)
  Receive Date: 20131216
  Receipt Date: 20131216
  Transmission Date: 20140711
  Serious: No
  Sender: FDA-Public Use
  Company Number: 1206USA02450

PATIENT
  Age: 65 Year
  Sex: Female

DRUGS (1)
  1. HYZAAR (LOSARTAN POTASSIUM (+) HYDROCHLOROTHIAZIDE) TABLET [Suspect]
     Indication: HYPERTENSION
     Dosage: 100-12.5, ORAL

REACTIONS (4)
  - Overdose [None]
  - Drug ineffective [None]
  - Pain in extremity [None]
  - Back pain [None]
